FAERS Safety Report 6893130-6 (Version None)
Quarter: 2010Q3

REPORT INFORMATION
  Report Type: 
  Country: None (occurrence: None)
  Receive Date: 20100731
  Receipt Date: 20090522
  Transmission Date: 20110219
  Serious: Yes (Other)
  Sender: FDA-Public Use
  Company Number: US-PFIZER INC-2009218274

PATIENT
  Sex: Male

DRUGS (1)
  1. FLAGYL [Suspect]

REACTIONS (1)
  - POLYURIA [None]
